FAERS Safety Report 8561041-6 (Version None)
Quarter: 2012Q3

REPORT INFORMATION
  Report Type: 
  Country: None (occurrence: None)
  Receive Date: 20120802
  Receipt Date: 20111007
  Transmission Date: 20120928
  Serious: Yes (Other)
  Sender: FDA-Public Use
  Company Number: US-BRISTOL-MYERS SQUIBB COMPANY-16042913

PATIENT
  Sex: Female

DRUGS (2)
  1. NORVIR [Suspect]
  2. REYATAZ [Suspect]
     Dosage: DOSE INCREASED TO 400MG AT 7TH MONTH

REACTIONS (3)
  - NORMAL NEWBORN [None]
  - VIROLOGIC FAILURE [None]
  - PREGNANCY [None]
